FAERS Safety Report 10720274 (Version 2)
Quarter: 2015Q1

REPORT INFORMATION
  Report Type: Spontaneous
  Country: FR (occurrence: FR)
  Receive Date: 20150119
  Receipt Date: 20150120
  Transmission Date: 20150721
  Serious: Yes (Hospitalization)
  Sender: FDA-Public Use
  Company Number: FR-JNJFOC-20150103791

PATIENT
  Age: 11 Year
  Sex: Male
  Weight: 46 kg

DRUGS (7)
  1. SOLDACTONE [Concomitant]
     Active Substance: CANRENOATE POTASSIUM
     Route: 065
  2. LASILIX [Concomitant]
     Active Substance: FUROSEMIDE
     Route: 065
     Dates: start: 20130523
  3. LASILIX [Concomitant]
     Active Substance: FUROSEMIDE
     Route: 065
     Dates: start: 20130425, end: 20130516
  4. SPORANOX [Suspect]
     Active Substance: ITRACONAZOLE\SODIUM CHLORIDE
     Indication: INFECTION PROPHYLAXIS
     Route: 048
     Dates: start: 20130507, end: 20130712
  5. LASILIX [Concomitant]
     Active Substance: FUROSEMIDE
     Dosage: 1-2 TAB
     Route: 065
  6. ALDACTONE [Concomitant]
     Active Substance: SPIRONOLACTONE
     Route: 065
     Dates: start: 20130516
  7. ALDACTONE [Concomitant]
     Active Substance: SPIRONOLACTONE
     Route: 065

REACTIONS (4)
  - Renal tubular disorder [Recovered/Resolved]
  - Condition aggravated [Recovered/Resolved]
  - Hepatocellular injury [Recovered/Resolved]
  - Jaundice cholestatic [Recovered/Resolved]

NARRATIVE: CASE EVENT DATE: 20130711
